FAERS Safety Report 14515445 (Version 1)
Quarter: 2018Q1

REPORT INFORMATION
  Report Type: Spontaneous
  Country: IE (occurrence: IE)
  Receive Date: 20180210
  Receipt Date: 20180210
  Transmission Date: 20180509
  Serious: Yes (Life-Threatening, Hospitalization, Other)
  Sender: FDA-Public Use
  Company Number: IE-AMGEN-IRLSP2018016542

PATIENT
  Age: 66 Year
  Sex: Female

DRUGS (6)
  1. PALBOCICLIB [Concomitant]
     Active Substance: PALBOCICLIB
     Dosage: UNK
     Dates: start: 201702
  2. XGEVA [Suspect]
     Active Substance: DENOSUMAB
     Indication: INVASIVE LOBULAR BREAST CARCINOMA
     Dosage: UNK
     Route: 065
     Dates: start: 2017
  3. XELODA [Concomitant]
     Active Substance: CAPECITABINE
     Dosage: 1 G/M2, UNK
     Dates: start: 201708
  4. FULVESTRANT. [Concomitant]
     Active Substance: FULVESTRANT
     Dosage: UNK
     Dates: start: 201702
  5. XGEVA [Suspect]
     Active Substance: DENOSUMAB
     Indication: METASTASES TO BONE
  6. XGEVA [Suspect]
     Active Substance: DENOSUMAB
     Indication: METASTASES TO LUNG

REACTIONS (12)
  - Haemoglobin abnormal [Unknown]
  - Constipation [Unknown]
  - Blood creatinine abnormal [Unknown]
  - Thrombocytopenia [Unknown]
  - Anaemia [Unknown]
  - Carbohydrate antigen 15-3 increased [Recovering/Resolving]
  - Fatigue [Unknown]
  - Tumour marker increased [Unknown]
  - Dehydration [Unknown]
  - Pain [Unknown]
  - Nausea [Unknown]
  - Platelet count abnormal [Recovering/Resolving]

NARRATIVE: CASE EVENT DATE: 2017
